FAERS Safety Report 23580580 (Version 1)
Quarter: 2024Q1

REPORT INFORMATION
  Report Type: Spontaneous
  Country: US (occurrence: US)
  Receive Date: 20240229
  Receipt Date: 20240229
  Transmission Date: 20240409
  Serious: No
  Sender: FDA-Public Use
  Company Number: US-BRISTOL-MYERS SQUIBB COMPANY-2024-032905

PATIENT
  Age: 75 Year
  Sex: Male

DRUGS (1)
  1. REVLIMID [Suspect]
     Active Substance: LENALIDOMIDE
     Indication: Follicular lymphoma stage III
     Dosage: DOSE : 10 MG; FREQUENCY : FOR 21 DAYS
     Route: 048

REACTIONS (4)
  - Malaise [Unknown]
  - General physical health deterioration [Unknown]
  - Therapy interrupted [Unknown]
  - Inability to afford medication [Unknown]
